FAERS Safety Report 5214192-8 (Version None)
Quarter: 2007Q1

REPORT INFORMATION
  Report Type: 
  Country: None (occurrence: None)
  Receive Date: 20070116
  Receipt Date: 20050804
  Transmission Date: 20070707
  Serious: Yes (Hospitalization)
  Sender: FDA-Public Use
  Company Number: 9039997-2005-00054

PATIENT
  Age: 19 Year
  Sex: Female

DRUGS (1)
  1. LEVULAN [Suspect]
     Indication: ACNE
     Dosage: 20%, ONCE, TOPICAL
     Route: 061
     Dates: start: 20050804

REACTIONS (7)
  - BURNS SECOND DEGREE [None]
  - ERYTHEMA [None]
  - FACE OEDEMA [None]
  - HAEMORRHAGE [None]
  - PAIN [None]
  - SCAB [None]
  - SKIN EXFOLIATION [None]
